FAERS Safety Report 15800806 (Version 3)
Quarter: 2019Q2

REPORT INFORMATION
  Report Type: Spontaneous
  Country: US (occurrence: US)
  Receive Date: 20190109
  Receipt Date: 20190502
  Transmission Date: 20190711
  Serious: Yes (Other)
  Sender: FDA-Public Use
  Company Number: US-AMGEN INC.-USASP2019002155

PATIENT

DRUGS (1)
  1. AIMOVIG [Suspect]
     Active Substance: ERENUMAB-AOOE
     Indication: PRODUCT USED FOR UNKNOWN INDICATION
     Dosage: 70 MILLIGRAM
     Route: 065

REACTIONS (7)
  - Hypersomnia [Unknown]
  - Dislocation of vertebra [Unknown]
  - Pain of skin [Unknown]
  - Bone disorder [Unknown]
  - Therapeutic product effect incomplete [Unknown]
  - Sensitive skin [Unknown]
  - Migraine [Unknown]
